FAERS Safety Report 7199523-4 (Version None)
Quarter: 2010Q4

REPORT INFORMATION
  Report Type: 
  Country: None (occurrence: None)
  Receive Date: 20101228
  Receipt Date: 20101216
  Transmission Date: 20110411
  Serious: Yes (Other)
  Sender: FDA-Public Use
  Company Number: PHHY2010DE87721

PATIENT
  Sex: Male
  Weight: 102 kg

DRUGS (5)
  1. ALISKIREN [Suspect]
     Indication: HYPERTENSION
  2. ANGIOTENSIN CONVERTING ENZYME BLOCKERS [Concomitant]
  3. BETA BLOCKING AGENTS [Concomitant]
  4. CALCIUM [Concomitant]
     Dosage: UNK
     Dates: end: 20081008
  5. DIURETICS [Concomitant]

REACTIONS (3)
  - BLOOD PRESSURE INCREASED [None]
  - PERCUTANEOUS CORONARY INTERVENTION [None]
  - VASCULAR GRAFT [None]
